FAERS Safety Report 13176856 (Version 1)
Quarter: 2017Q1

REPORT INFORMATION
  Report Type: Spontaneous
  Country: FR (occurrence: FR)
  Receive Date: 20170201
  Receipt Date: 20170201
  Transmission Date: 20170428
  Serious: Yes (Death)
  Sender: FDA-Public Use
  Company Number: FR-ABBVIE-17P-056-1860801-00

PATIENT
  Age: 84 Year
  Sex: Female

DRUGS (5)
  1. PIPERACILLIN [Suspect]
     Active Substance: PIPERACILLIN
     Indication: PNEUMONITIS
     Route: 042
     Dates: start: 20170106, end: 20170112
  2. DEPAKINE [Suspect]
     Active Substance: VALPROATE SODIUM
     Indication: STATUS EPILEPTICUS
     Route: 048
     Dates: start: 20170113
  3. TAZOBACTAM SODIUM [Suspect]
     Active Substance: TAZOBACTAM SODIUM
     Indication: PNEUMONITIS
     Route: 042
     Dates: start: 20170106, end: 20170112
  4. TAMIFLU [Suspect]
     Active Substance: OSELTAMIVIR PHOSPHATE
     Indication: INFLUENZA
     Route: 048
     Dates: start: 20170112
  5. AUGMENTIN [Concomitant]
     Active Substance: AMOXICILLIN\CLAVULANATE POTASSIUM
     Indication: PRODUCT USED FOR UNKNOWN INDICATION
     Dates: start: 20170104, end: 20170106

REACTIONS (5)
  - Hypertonia [Fatal]
  - Clonus [Fatal]
  - Trismus [Fatal]
  - Disturbance in attention [Fatal]
  - Choreoathetosis [Fatal]

NARRATIVE: CASE EVENT DATE: 20170113
